FAERS Safety Report 8093013-2 (Version None)
Quarter: 2012Q1

REPORT INFORMATION
  Report Type: 
  Country: None (occurrence: None)
  Receive Date: 20120128
  Receipt Date: 20110926
  Transmission Date: 20120608
  Serious: No
  Sender: FDA-Public Use
  Company Number: US-ABBOTT-09P-163-0615741-00

PATIENT
  Sex: Female
  Weight: 121.67 kg

DRUGS (3)
  1. HUMIRA [Suspect]
     Indication: PSORIASIS
     Dates: start: 20091007, end: 20091122
  2. CELEXA [Concomitant]
     Indication: ANXIETY
  3. HUMIRA [Suspect]
     Dates: start: 20110818

REACTIONS (14)
  - COUGH [None]
  - SKIN DISCOLOURATION [None]
  - DIZZINESS [None]
  - SKIN EXFOLIATION [None]
  - ERYTHEMA [None]
  - NASOPHARYNGITIS [None]
  - ASTHENIA [None]
  - FEELING ABNORMAL [None]
  - FEELING HOT [None]
  - DYSPHONIA [None]
  - DRY SKIN [None]
  - HYPOAESTHESIA [None]
  - NAUSEA [None]
  - ALOPECIA [None]
